FAERS Safety Report 14910390 (Version 1)
Quarter: 2018Q2

REPORT INFORMATION
  Report Type: Spontaneous
  Country: US (occurrence: US)
  Receive Date: 20180517
  Receipt Date: 20180517
  Transmission Date: 20180711
  Serious: No
  Sender: FDA-Public Use
  Company Number: US-TEVA-2018-US-893628

PATIENT
  Sex: Female

DRUGS (1)
  1. NICOTINE ANTI-SMOKING FLAVOR [Suspect]
     Active Substance: NICOTINE

REACTIONS (4)
  - Nausea [Unknown]
  - Product packaging issue [Unknown]
  - Product quality issue [Unknown]
  - Heart rate increased [Unknown]
